FAERS Safety Report 7579502-5 (Version None)
Quarter: 2011Q2

REPORT INFORMATION
  Report Type: 
  Country: None (occurrence: None)
  Receive Date: 20110629
  Receipt Date: 20091011
  Transmission Date: 20111010
  Serious: Yes (Hospitalization, Other)
  Sender: FDA-Public Use
  Company Number: US-BAYER-200936271NA

PATIENT
  Age: 55 Year
  Sex: Female
  Weight: 56.689 kg

DRUGS (20)
  1. TRASYLOL [Suspect]
     Dosage: 1 ML, ONCE, TEST DOSE
     Dates: start: 20040901
  2. ZOCOR [Concomitant]
     Dosage: 40 MG, QD
     Route: 048
  3. PLATELETS [Concomitant]
     Dosage: 1 U, UNK
     Route: 042
     Dates: start: 20040901
  4. TRASYLOL [Suspect]
     Indication: CORONARY ARTERY BYPASS
     Dosage: LOADING DOSE, 200 ML
     Route: 042
     Dates: start: 20040901
  5. XANAX [Concomitant]
     Dosage: 1 MG, HS
     Route: 048
  6. ROCEPHIN [Concomitant]
     Dosage: 1 MG, UNK
     Route: 042
  7. LASIX [Concomitant]
     Dosage: 80 MG, UNK, PRIME
  8. PLAVIX [Concomitant]
     Dosage: 75 MG, QD
     Route: 048
  9. VERSED [Concomitant]
     Dosage: 5 MG, UNK
     Route: 042
     Dates: start: 20040901
  10. PROTAMINE SULFATE [Concomitant]
     Dosage: PRIME
  11. HEPARIN [Concomitant]
     Dosage: 250 MG, UNK, PRIME
  12. RED BLOOD CELLS [Concomitant]
     Dosage: UNK
     Route: 042
     Dates: start: 20040901
  13. TRASYLOL [Suspect]
     Dosage: FULL DOSE, 3 BOTTLES
     Dates: start: 20040901
  14. HEPARIN [Concomitant]
     Route: 042
  15. NIPRIDE [Concomitant]
     Route: 042
  16. LEVOPHED [Concomitant]
     Route: 042
  17. VANCOMYCIN [Concomitant]
     Dosage: 1 G, UNK
     Route: 042
  18. FRESH FROZEN PLASMA [Concomitant]
     Dosage: 3 U, UNK
     Route: 042
     Dates: start: 20040901
  19. TRASYLOL [Suspect]
     Dosage: 200ML PRIME
     Dates: start: 20040901, end: 20040901
  20. LASIX [Concomitant]
     Route: 042

REACTIONS (8)
  - INJURY [None]
  - ANXIETY [None]
  - ANHEDONIA [None]
  - FEAR [None]
  - PAIN [None]
  - UNEVALUABLE EVENT [None]
  - RENAL FAILURE [None]
  - DEPRESSION [None]
